FAERS Safety Report 17643735 (Version 1)
Quarter: 2020Q2

REPORT INFORMATION
  Report Type: Spontaneous
  Country: US (occurrence: US)
  Receive Date: 20200408
  Receipt Date: 20200408
  Transmission Date: 20200713
  Serious: Yes (Other)
  Sender: FDA-Public Use
  Company Number: US-ALLERGAN-1948671US

PATIENT
  Age: 43 Year
  Sex: Female

DRUGS (1)
  1. LILETTA [Suspect]
     Active Substance: LEVONORGESTREL
     Indication: MENSTRUATION IRREGULAR
     Dosage: 52 MG, SINGLE
     Route: 015
     Dates: start: 20181120, end: 20190709

REACTIONS (4)
  - Uterine spasm [Recovered/Resolved]
  - Uterine haemorrhage [Recovered/Resolved]
  - Lethargy [Recovered/Resolved]
  - Off label use [Unknown]

NARRATIVE: CASE EVENT DATE: 201811
